FAERS Safety Report 7394844-4 (Version None)
Quarter: 2011Q1

REPORT INFORMATION
  Report Type: 
  Country: None (occurrence: None)
  Receive Date: 20110324
  Receipt Date: 20110317
  Transmission Date: 20110831
  Serious: Yes (Other)
  Sender: FDA-Public Use
  Company Number: 2011SP003560

PATIENT
  Age: 36 Year
  Sex: Female
  Weight: 57 kg

DRUGS (10)
  1. NORGESIC [Suspect]
     Indication: INTERVERTEBRAL DISC PROTRUSION
     Dosage: 485 MG; Q12H; PO
     Route: 048
     Dates: start: 20100409, end: 20100411
  2. PARECOXIB SODIUM [Suspect]
     Indication: INTERVERTEBRAL DISC PROTRUSION
     Dosage: 40 MG; QPM; IM
     Route: 030
     Dates: start: 20100413, end: 20100423
  3. FELDENE [Suspect]
     Indication: INTERVERTEBRAL DISC PROTRUSION
     Dosage: 10 MG; Q12H; PO
     Route: 048
     Dates: start: 20100420, end: 20100425
  4. CELEBREX [Suspect]
     Indication: INTERVERTEBRAL DISC PROTRUSION
     Dosage: 100 MG; QAM; PO
     Route: 048
     Dates: start: 20100413, end: 20100423
  5. LOSEC (OMEPRAZOLE) (OTHER MFR) (OMEPRAZOLE /00661201/) [Suspect]
     Indication: PROPHYLAXIS AGAINST GASTROINTESTINAL ULCER
     Dosage: 20 MG; QAM; PO
     Route: 048
     Dates: start: 20100409, end: 20100419
  6. LOXITAN (MELOXICAM /01044401/) [Suspect]
     Indication: INTERVERTEBRAL DISC PROTRUSION
     Dosage: 15 MG; ; PO
     Route: 048
     Dates: start: 20100410, end: 20100410
  7. GABITON (GABAPENTIN) [Suspect]
     Indication: INTERVERTEBRAL DISC PROTRUSION
     Dosage: 300 MG; QD; PO
     Route: 048
     Dates: start: 20100420, end: 20100425
  8. CELESTONE [Suspect]
     Indication: INTERVERTEBRAL DISC PROTRUSION
     Dosage: 6 MG; ; IM
     Route: 042
     Dates: start: 20100413, end: 20100423
  9. APOTEL PLUS (PARACETAMOL /00020001/) [Suspect]
     Indication: INTERVERTEBRAL DISC PROTRUSION
     Dosage: 620 MG; QPM; IM
     Route: 030
     Dates: start: 20100413, end: 20100423
  10. ROXITROL (ROXITHROMYCIN) [Suspect]
     Indication: PROPHYLAXIS AGAINST GASTROINTESTINAL ULCER
     Dosage: 40 MG; QAM; PO
     Route: 048
     Dates: start: 20100420, end: 20100425

REACTIONS (4)
  - DRUG INTERACTION [None]
  - ABORTION SPONTANEOUS [None]
  - DRUG EXPOSURE DURING PREGNANCY [None]
  - PREGNANCY [None]
